FAERS Safety Report 7331570-1 (Version None)
Quarter: 2011Q1

REPORT INFORMATION
  Report Type: 
  Country: None (occurrence: None)
  Receive Date: 20110228
  Receipt Date: 20110228
  Transmission Date: 20110831
  Serious: Yes (Life-Threatening, Hospitalization)
  Sender: FDA-Public Use
  Company Number: None

PATIENT
  Age: 44 Year
  Sex: Female
  Weight: 63.6 kg

DRUGS (1)
  1. FERRLECIT [Suspect]
     Indication: SERUM FERRITIN DECREASED
     Dosage: FERRLECIT 250MG IV DRIP OVER 2 HOURS
     Route: 041
     Dates: start: 20110214

REACTIONS (10)
  - BACK PAIN [None]
  - GAIT DISTURBANCE [None]
  - VOMITING [None]
  - MYOCARDIAL ISCHAEMIA [None]
  - CHEST PAIN [None]
  - RASH [None]
  - ARTHRALGIA [None]
  - SENSATION OF HEAVINESS [None]
  - PRESYNCOPE [None]
  - DYSPNOEA [None]
